FAERS Safety Report 17698822 (Version 7)
Quarter: 2020Q4

REPORT INFORMATION
  Report Type: Report from Study
  Country: US (occurrence: US)
  Receive Date: 20200423
  Receipt Date: 20201225
  Transmission Date: 20210113
  Serious: Yes (Hospitalization)
  Sender: FDA-Public Use
  Company Number: NVSC2020US108074

PATIENT
  Age: 76 Year
  Sex: Female

DRUGS (1)
  1. COSENTYX [Suspect]
     Active Substance: SECUKINUMAB
     Indication: PSORIASIS
     Dosage: 300 MG, QMO
     Route: 058

REACTIONS (11)
  - Back pain [Unknown]
  - Diarrhoea [Unknown]
  - Hypertension [Unknown]
  - Arthralgia [Unknown]
  - Drug ineffective [Unknown]
  - Pain in extremity [Unknown]
  - Skin exfoliation [Unknown]
  - Stress [Unknown]
  - Urinary tract infection [Unknown]
  - Irritable bowel syndrome [Unknown]
  - Vision blurred [Unknown]

NARRATIVE: CASE EVENT DATE: 202001
